FAERS Safety Report 8549704-X (Version None)
Quarter: 2012Q3

REPORT INFORMATION
  Report Type: 
  Country: None (occurrence: None)
  Receive Date: 20120730
  Receipt Date: 20120724
  Transmission Date: 20120928
  Serious: Yes (Death)
  Sender: FDA-Public Use
  Company Number: FR-ROCHE-802079

PATIENT
  Sex: Male
  Weight: 60 kg

DRUGS (6)
  1. ACETAMINOPHEN [Concomitant]
     Indication: PAIN
     Route: 048
     Dates: start: 20110906, end: 20110909
  2. AVASTIN [Suspect]
     Indication: LUNG NEOPLASM MALIGNANT
     Dosage: DAY 11 OF 4TH COURSE COMPLETED
     Route: 042
     Dates: start: 20110621, end: 20110909
  3. PEMETREXED DISODIUM AND PEMETREXED DISODIUM [Suspect]
     Indication: LUNG NEOPLASM MALIGNANT
     Dosage: DAY 11 OF 4TH COURSE COMPLETED
     Route: 042
     Dates: start: 20110621, end: 20110909
  4. FOLIC ACID [Concomitant]
     Indication: NEOPLASM MALIGNANT
     Route: 048
     Dates: start: 20110621, end: 20110909
  5. PREDNISONE TAB [Concomitant]
     Indication: NEOPLASM MALIGNANT
     Route: 048
     Dates: start: 20110815, end: 20110909
  6. ALPRAZOLAM [Concomitant]
     Indication: ANXIETY
     Route: 048
     Dates: start: 20110823, end: 20110909

REACTIONS (5)
  - HYPOTENSION [None]
  - HAEMATEMESIS [None]
  - PANCYTOPENIA [None]
  - BRADYCARDIA [None]
  - ACUTE RESPIRATORY FAILURE [None]
